FAERS Safety Report 17058967 (Version 2)
Quarter: 2020Q1

REPORT INFORMATION
  Report Type: Spontaneous
  Country: US (occurrence: US)
  Receive Date: 20191121
  Receipt Date: 20200115
  Transmission Date: 20200409
  Serious: No
  Sender: FDA-Public Use
  Company Number: US-PFIZER INC-2019501208

PATIENT
  Age: 70 Year
  Sex: Male

DRUGS (3)
  1. INLYTA [Suspect]
     Active Substance: AXITINIB
     Dosage: 5 MG, UNK
  2. INLYTA [Suspect]
     Active Substance: AXITINIB
     Dosage: 5 MG, 1X/DAY (TOOK THE THIRD DOSE THIS MORNING )
  3. INLYTA [Suspect]
     Active Substance: AXITINIB
     Dosage: 5 MG, 1X/DAY (EVENING HE TOOK THE SECOND )

REACTIONS (5)
  - Blood pressure increased [Unknown]
  - Taste disorder [Unknown]
  - Appetite disorder [Unknown]
  - Hypogeusia [Unknown]
  - Palmar-plantar erythrodysaesthesia syndrome [Unknown]
